FAERS Safety Report 8460531 (Version 5)
Quarter: 2013Q2

REPORT INFORMATION
  Report Type: Spontaneous
  Country: NL (occurrence: NL)
  Receive Date: 20120315
  Receipt Date: 20130403
  Transmission Date: 20140414
  Serious: Yes (Other)
  Sender: FDA-Public Use
  Company Number: NL-PFIZER INC-2012063029

PATIENT
  Age: 36 Year
  Sex: Female
  Weight: 68 kg

DRUGS (3)
  1. DEPO-PROVERA [Suspect]
     Indication: CONTRACEPTION
     Dosage: UNK
     Dates: start: 20111229
  2. NAPROXEN [Concomitant]
     Dosage: UNK
  3. INTRAUTERINE CONTRACEPTIVES [Concomitant]
     Indication: CONTRACEPTION
     Dosage: UNK

REACTIONS (15)
  - Suicidal ideation [Recovered/Resolved]
  - Depression [Not Recovered/Not Resolved]
  - Personality change [Unknown]
  - Crying [Unknown]
  - Feeling abnormal [Unknown]
  - Sexually transmitted disease [Unknown]
  - Weight increased [Unknown]
  - Menorrhagia [Recovered/Resolved]
  - Breast pain [Recovered/Resolved]
  - Alopecia [Unknown]
  - Fatigue [Not Recovered/Not Resolved]
  - Libido decreased [Unknown]
  - Endometrial disorder [Unknown]
  - Malaise [Unknown]
  - Drug ineffective [Unknown]
